FAERS Safety Report 9393550 (Version 1)
Quarter: 2013Q3

REPORT INFORMATION
  Report Type: Spontaneous
  Country: US (occurrence: US)
  Receive Date: 20130710
  Receipt Date: 20130710
  Transmission Date: 20140515
  Serious: Yes (Other)
  Sender: FDA-Public Use
  Company Number: US-BAYER-2013-081877

PATIENT
  Age: 78 Year
  Sex: Male
  Weight: 60.77 kg

DRUGS (6)
  1. ALKA-SELTZER ORIGINAL [Suspect]
     Dosage: 2 DF, QD
     Route: 048
     Dates: start: 1955, end: 1980
  2. PHILLIPS^ LAXATIVE DIETARY SUPPLEMENT [Suspect]
     Indication: CONSTIPATION
     Dosage: UNK
     Route: 048
  3. BAYER ASPIRIN REGIMEN ADULT LOW STRENGTH [Suspect]
     Indication: DIABETES MELLITUS
     Dosage: 1 DF, QD
     Route: 048
     Dates: start: 1998
  4. CALCIUM [Concomitant]
  5. VITAMIN D [Concomitant]
  6. PHILLIPS^ MILK OF MAGNESIA [Concomitant]
     Dosage: UNK UNK, PRN

REACTIONS (4)
  - Drug dependence [Recovered/Resolved]
  - Drug ineffective [None]
  - Off label use [None]
  - Incorrect drug administration duration [None]
